FAERS Safety Report 9758641 (Version 1)
Quarter: 2013Q4

REPORT INFORMATION
  Report Type: Spontaneous
  Country: US (occurrence: None)
  Receive Date: 20131216
  Receipt Date: 20131216
  Transmission Date: 20140711
  Serious: Yes (Hospitalization, Other)
  Sender: FDA-Public Use
  Company Number: RB-54500-2013

PATIENT
  Sex: Male

DRUGS (1)
  1. SUBOXONE 8 MG [Suspect]
     Indication: DRUG DEPENDENCE
     Dosage: (32 MG, SUBOXONE FILM TRANSPLACENTAL)

REACTIONS (4)
  - Foetal exposure during pregnancy [None]
  - Screaming [None]
  - Neonatal disorder [None]
  - Drug withdrawal syndrome neonatal [None]
